FAERS Safety Report 4739092-9 (Version None)
Quarter: 2005Q3

REPORT INFORMATION
  Report Type: 
  Country: None (occurrence: None)
  Receive Date: 20050810
  Receipt Date: 20050413
  Transmission Date: 20060218
  Serious: No
  Sender: FDA-Public Use
  Company Number: US-GLAXOSMITHKLINE-A0554005A

PATIENT
  Age: 38 Year
  Sex: Male

DRUGS (3)
  1. PAXIL CR [Suspect]
     Indication: DEPRESSION
     Dosage: 25MG PER DAY
     Route: 048
     Dates: start: 20040305, end: 20050411
  2. PAROXETINE HCL [Suspect]
     Indication: DEPRESSION
     Dosage: 20MG SINGLE DOSE
     Route: 048
     Dates: start: 20050412, end: 20050412
  3. NO CONCURRENT MEDICATION [Concomitant]

REACTIONS (12)
  - ANXIETY [None]
  - BLOOD PRESSURE FLUCTUATION [None]
  - COLD SWEAT [None]
  - DEPRESSION [None]
  - DRUG WITHDRAWAL SYNDROME [None]
  - EARLY MORNING AWAKENING [None]
  - FEELING ABNORMAL [None]
  - HYPERHIDROSIS [None]
  - PALPITATIONS [None]
  - PARAESTHESIA [None]
  - THIRST [None]
  - VERTIGO [None]
